FAERS Safety Report 19414058 (Version 2)
Quarter: 2021Q3

REPORT INFORMATION
  Report Type: Spontaneous
  Country: BR (occurrence: BR)
  Receive Date: 20210614
  Receipt Date: 20210715
  Transmission Date: 20211014
  Serious: Yes (Other)
  Sender: FDA-Public Use
  Company Number: BR-GLAXOSMITHKLINE-BR2021054638

PATIENT
  Age: 75 Year
  Sex: Male

DRUGS (11)
  1. SPIRIVA RESPIMAT [Suspect]
     Active Substance: TIOTROPIUM BROMIDE
     Indication: PRODUCT USED FOR UNKNOWN INDICATION
     Dosage: UNK
  2. BENICAR [Suspect]
     Active Substance: OLMESARTAN MEDOXOMIL
     Indication: HYPERTENSION
     Dosage: ONLY TAKES IT WHEN HE NEEDED IT
  3. AVAMYS [Suspect]
     Active Substance: FLUTICASONE FUROATE
     Indication: RHINITIS
     Dosage: 2 PUFF(S), QD
     Dates: start: 2019
  4. BENICAR [Suspect]
     Active Substance: OLMESARTAN MEDOXOMIL
     Dosage: 20 MG
  5. ELIQUIS [Suspect]
     Active Substance: APIXABAN
     Indication: COAGULOPATHY
     Dosage: UNK
     Dates: start: 20210517, end: 20210607
  6. AVAMYS [Suspect]
     Active Substance: FLUTICASONE FUROATE
     Indication: DYSPNOEA
     Dosage: 2 PUFF(S), QD
     Route: 055
     Dates: start: 20210605
  7. AVAMYS [Suspect]
     Active Substance: FLUTICASONE FUROATE
     Indication: RHINORRHOEA
  8. MIFLONIDE [Suspect]
     Active Substance: BUDESONIDE
     Indication: PRODUCT USED FOR UNKNOWN INDICATION
     Dosage: UNK, 400MCG
  9. AVAMYS [Suspect]
     Active Substance: FLUTICASONE FUROATE
     Indication: EMPHYSEMA
  10. ONBRIZE [Suspect]
     Active Substance: INDACATEROL MALEATE
     Indication: PRODUCT USED FOR UNKNOWN INDICATION
     Dosage: UNK, 300MCG
  11. BEROTEC [Concomitant]
     Active Substance: FENOTEROL HYDROBROMIDE
     Indication: DYSPNOEA
     Dosage: UNK, 2 DROPS

REACTIONS (19)
  - Condition aggravated [Not Recovered/Not Resolved]
  - Fatigue [Unknown]
  - Product complaint [Unknown]
  - Suffocation feeling [Recovered/Resolved]
  - Dyschezia [Recovered/Resolved]
  - Oropharyngeal discomfort [Recovered/Resolved]
  - Dyspnoea [Recovered/Resolved]
  - Chest discomfort [Unknown]
  - Drug ineffective for unapproved indication [Unknown]
  - Disease recurrence [Unknown]
  - Malaise [Unknown]
  - Product dose omission issue [Unknown]
  - Epistaxis [Unknown]
  - Blood viscosity increased [Unknown]
  - Feeling hot [Unknown]
  - Haemorrhoidal haemorrhage [Recovered/Resolved]
  - Nervousness [Unknown]
  - Hypotension [Unknown]
  - Product use in unapproved indication [Unknown]

NARRATIVE: CASE EVENT DATE: 20210607
